FAERS Safety Report 5597804-9 (Version None)
Quarter: 2007Q4

REPORT INFORMATION
  Report Type: 
  Country: None (occurrence: None)
  Receive Date: 20071221
  Receipt Date: 20070621
  Transmission Date: 20080405
  Serious: Yes (Hospitalization)
  Sender: FDA-Public Use
  Company Number: US200706005052

PATIENT
  Age: 63 Year
  Sex: Female

DRUGS (1)
  1. HUMALOG PEN [Suspect]
     Dosage: 20 U

REACTIONS (1)
  - BLOOD GLUCOSE FLUCTUATION [None]
